FAERS Safety Report 13447323 (Version 1)
Quarter: 2017Q2

REPORT INFORMATION
  Report Type: Report from Study
  Country: CA (occurrence: CA)
  Receive Date: 20170417
  Receipt Date: 20170417
  Transmission Date: 20170830
  Serious: Yes (Death)
  Sender: FDA-Public Use
  Company Number: CA-PFIZER INC-2005078472

PATIENT
  Age: 27 Year
  Sex: Female

DRUGS (3)
  1. METHYLERGOMETRINE [Suspect]
     Active Substance: METHYLERGONOVINE MALEATE
     Dosage: UNK
  2. MISOPROSTOL. [Suspect]
     Active Substance: MISOPROSTOL
     Indication: ABORTION INDUCED
     Dosage: 800 UG, 1X/DAY
     Route: 067
     Dates: start: 20010825, end: 20010827
  3. MIFEPREX [Suspect]
     Active Substance: MIFEPRISTONE
     Indication: ABORTION INDUCED
     Dosage: 200 MG, 1X/DAY
     Route: 048
     Dates: start: 20010823, end: 20010823

REACTIONS (8)
  - Clostridium bacteraemia [Fatal]
  - Uterine spasm [Fatal]
  - Endometritis [Fatal]
  - Organ failure [Fatal]
  - Cardiac arrest [Fatal]
  - Hysterectomy [Fatal]
  - Vaginal haemorrhage [Fatal]
  - Septic shock [Fatal]

NARRATIVE: CASE EVENT DATE: 200108
